FAERS Safety Report 9438982 (Version 1)
Quarter: 2013Q3

REPORT INFORMATION
  Report Type: Spontaneous
  Country: PT (occurrence: PT)
  Receive Date: 20130802
  Receipt Date: 20130802
  Transmission Date: 20140515
  Serious: Yes (Death, Other)
  Sender: FDA-Public Use
  Company Number: PHHY2013PT081775

PATIENT
  Age: 46 Year
  Sex: Female

DRUGS (4)
  1. DOXORUBICIN [Suspect]
     Indication: NON-HODGKIN^S LYMPHOMA
  2. VINCRISTINE [Suspect]
     Indication: NON-HODGKIN^S LYMPHOMA
  3. PREDNISONE [Suspect]
     Indication: NON-HODGKIN^S LYMPHOMA
  4. CYCLOPHOSPHAMIDE [Suspect]
     Indication: NON-HODGKIN^S LYMPHOMA

REACTIONS (8)
  - Hepatitis acute [Fatal]
  - Asthenia [Fatal]
  - Jaundice [Fatal]
  - Decreased appetite [Fatal]
  - Ascites [Fatal]
  - Abdominal pain [Fatal]
  - Hepatitis B [Fatal]
  - General physical health deterioration [None]
